FAERS Safety Report 4921101-5 (Version None)
Quarter: 2006Q1

REPORT INFORMATION
  Report Type: 
  Country: None (occurrence: None)
  Receive Date: 20060223
  Receipt Date: 20060215
  Transmission Date: 20060701
  Serious: Yes (Death, Other)
  Sender: FDA-Public Use
  Company Number: US-MERCK-0602USA04550

PATIENT
  Age: 56 Year
  Sex: Male
  Weight: 89 kg

DRUGS (2)
  1. VIOXX [Suspect]
     Indication: ARTHRITIS
     Route: 048
     Dates: start: 20011015, end: 20040812
  2. IBUPROFEN [Concomitant]
     Route: 065

REACTIONS (6)
  - CORONARY ARTERY THROMBOSIS [None]
  - DEATH [None]
  - MYOCARDIAL INFARCTION [None]
  - PHYSIOTHERAPY [None]
  - ROAD TRAFFIC ACCIDENT [None]
  - WHIPLASH INJURY [None]
